FAERS Safety Report 9643969 (Version 1)
Quarter: 2013Q4

REPORT INFORMATION
  Report Type: Spontaneous
  Country: IT (occurrence: None)
  Receive Date: 20131023
  Receipt Date: 20131023
  Transmission Date: 20140711
  Serious: Yes (Hospitalization)
  Sender: FDA-Public Use
  Company Number: 2013AP008981

PATIENT
  Age: 67 Year
  Sex: Male

DRUGS (2)
  1. PANTOPRAZOLE [Suspect]
     Indication: PROPHYLAXIS AGAINST GASTROINTESTINAL ULCER
     Route: 048
     Dates: start: 20130904, end: 20130907
  2. OKI [Suspect]
     Indication: OSTEOARTHRITIS
     Route: 048
     Dates: start: 20130904, end: 20130907

REACTIONS (3)
  - Eye haemorrhage [None]
  - Dry eye [None]
  - Vision blurred [None]
